FAERS Safety Report 16062334 (Version 1)
Quarter: 2019Q1

REPORT INFORMATION
  Report Type: Spontaneous
  Country: TR (occurrence: TR)
  Receive Date: 20190312
  Receipt Date: 20190312
  Transmission Date: 20190418
  Serious: Yes (Life-Threatening, Other)
  Sender: FDA-Public Use
  Company Number: TR-TERSERA THERAPEUTICS LLC-2019TRS000126

PATIENT

DRUGS (3)
  1. ERGOMAR [Suspect]
     Active Substance: ERGOTAMINE TARTRATE
     Indication: PRODUCT USED FOR UNKNOWN INDICATION
     Dosage: 0.75 MG, (X 20)
     Route: 065
  2. PARACETAMOL [Suspect]
     Active Substance: ACETAMINOPHEN
     Indication: PRODUCT USED FOR UNKNOWN INDICATION
     Dosage: 350 MG,(X20)
     Route: 065
  3. AMOXICILLIN. [Suspect]
     Active Substance: AMOXICILLIN
     Indication: PRODUCT USED FOR UNKNOWN INDICATION
     Dosage: 875 MG,(X20)
     Route: 065

REACTIONS (5)
  - Intentional overdose [Unknown]
  - Abortion spontaneous [Unknown]
  - Suicide attempt [Unknown]
  - Vaginal haemorrhage [Unknown]
  - Exposure during pregnancy [Unknown]
